FAERS Safety Report 8319763-8 (Version None)
Quarter: 2012Q2

REPORT INFORMATION
  Report Type: 
  Country: None (occurrence: None)
  Receive Date: 20120427
  Receipt Date: 20120424
  Transmission Date: 20120825
  Serious: Yes (Death, Hospitalization)
  Sender: FDA-Public Use
  Company Number: BE-BRISTOL-MYERS SQUIBB COMPANY-16446445

PATIENT
  Age: 69 Year
  Sex: Male

DRUGS (2)
  1. PLACEBO [Suspect]
     Indication: PROSTATE CANCER
     Route: 042
     Dates: start: 20120209, end: 20120301
  2. IPILIMUMAB [Suspect]
     Indication: PROSTATE CANCER
     Dosage: 1DF=730 UNITS NOT SPECIFIED DOSE:1440 UNITS NOS 2INJ
     Route: 042
     Dates: start: 20120209, end: 20120301

REACTIONS (2)
  - CHOLANGITIS [None]
  - GALLBLADDER PERFORATION [None]
